FAERS Safety Report 7807014-X (Version None)
Quarter: 2011Q4

REPORT INFORMATION
  Report Type: 
  Country: None (occurrence: None)
  Receive Date: 20111011
  Receipt Date: 20110930
  Transmission Date: 20120403
  Serious: Yes (Other)
  Sender: FDA-Public Use
  Company Number: US-ROCHE-789700

PATIENT
  Sex: Male
  Weight: 81.6 kg

DRUGS (5)
  1. NAPROXEN SODIUM [Suspect]
     Indication: PAIN
     Route: 048
  2. NAPROXEN SODIUM [Suspect]
     Dosage: DOSE REDUCED
     Route: 048
  3. NIASPAN [Suspect]
     Indication: BLOOD CHOLESTEROL INCREASED
     Route: 048
     Dates: start: 20000101, end: 20000101
  4. AMLODIPINE [Concomitant]
  5. FISH OIL [Concomitant]

REACTIONS (5)
  - BLOOD CHOLESTEROL INCREASED [None]
  - ROAD TRAFFIC ACCIDENT [None]
  - PAIN [None]
  - DIABETES MELLITUS [None]
  - DRUG HYPERSENSITIVITY [None]
